FAERS Safety Report 6045293-2 (Version None)
Quarter: 2009Q1

REPORT INFORMATION
  Report Type: 
  Country: None (occurrence: None)
  Receive Date: 20090121
  Receipt Date: 20090113
  Transmission Date: 20090719
  Serious: Yes (Other)
  Sender: FDA-Public Use
  Company Number: PHHY2009AU01256

PATIENT
  Sex: Male

DRUGS (2)
  1. STALEVO 100 [Suspect]
     Dosage: UNK
  2. STALEVO 100 [Suspect]
     Dosage: 6 TABLETS/ DAY

REACTIONS (5)
  - BALANCE DISORDER [None]
  - DYSPNOEA [None]
  - SPEECH DISORDER [None]
  - THROAT IRRITATION [None]
  - TREMOR [None]
